FAERS Safety Report 9124563 (Version 1)
Quarter: 2013Q1

REPORT INFORMATION
  Report Type: Report from Study
  Country: US (occurrence: US)
  Receive Date: 20130116
  Receipt Date: 20130116
  Transmission Date: 20140127
  Serious: Yes (Hospitalization, Other)
  Sender: FDA-Public Use
  Company Number: US-ASTELLAS-2013US000563

PATIENT
  Age: 70 None
  Sex: Male
  Weight: 76 kg

DRUGS (5)
  1. ERLOTINIB TABLET [Suspect]
     Indication: NON-SMALL CELL LUNG CANCER
     Dosage: 150 MG, UID/QD
     Route: 048
     Dates: start: 20120928
  2. ERLOTINIB TABLET [Suspect]
     Dosage: 100 MG, UID/QD
     Route: 048
  3. ADVIL                              /00109201/ [Concomitant]
     Indication: PAIN
     Dosage: 200 MG, UNKNOWN/D
     Route: 048
     Dates: start: 20120720
  4. MAGNESIUM CITRATE [Concomitant]
     Indication: CONSTIPATION
     Dosage: UNK
     Route: 065
     Dates: start: 20120921
  5. COMPAZINE                          /00013302/ [Concomitant]
     Indication: CONSTIPATION
     Dosage: UNK
     Route: 048
     Dates: start: 20120831

REACTIONS (12)
  - Compression fracture [Recovering/Resolving]
  - Intervertebral disc protrusion [Recovering/Resolving]
  - Iron deficiency anaemia [Recovering/Resolving]
  - Fracture [Not Recovered/Not Resolved]
  - Pleuritic pain [Unknown]
  - Radiation skin injury [Recovered/Resolved]
  - Rash [Recovered/Resolved]
  - Pruritus [Recovered/Resolved]
  - Constipation [Not Recovered/Not Resolved]
  - Fatigue [Not Recovered/Not Resolved]
  - Nausea [Unknown]
  - Cough [Unknown]
